FAERS Safety Report 8162654-6 (Version None)
Quarter: 2012Q1

REPORT INFORMATION
  Report Type: 
  Country: None (occurrence: None)
  Receive Date: 20120224
  Receipt Date: 20120220
  Transmission Date: 20120608
  Serious: Yes (Hospitalization)
  Sender: FDA-Public Use
  Company Number: FR-TEVA-320960ISR

PATIENT
  Sex: Male

DRUGS (3)
  1. OXALIPLATIN [Suspect]
     Route: 042
     Dates: start: 20111207, end: 20120104
  2. LEVOLEUCOVORIN CALCIUM [Concomitant]
     Indication: OESOPHAGEAL CARCINOMA
     Dosage: PER COURSE
     Route: 042
     Dates: start: 20111207, end: 20120104
  3. FLUOROURACIL [Concomitant]
     Indication: OESOPHAGEAL CARCINOMA
     Dosage: 700MG AND 2850MG PER COURSE
     Route: 042
     Dates: start: 20111207, end: 20120104

REACTIONS (4)
  - CHILLS [None]
  - HYPERTHERMIA [None]
  - OXYGEN SATURATION DECREASED [None]
  - HYPOVOLAEMIA [None]
